FAERS Safety Report 20095801 (Version 1)
Quarter: 2021Q4

REPORT INFORMATION
  Report Type: Spontaneous
  Country: US (occurrence: US)
  Receive Date: 20211122
  Receipt Date: 20211122
  Transmission Date: 20220303
  Serious: No
  Sender: FDA-Public Use
  Company Number: US-APOTEX-2021AP042416

PATIENT
  Age: 62 Year
  Sex: Male

DRUGS (1)
  1. ERLOTINIB [Suspect]
     Active Substance: ERLOTINIB
     Indication: Lung carcinoma cell type unspecified stage IV
     Dosage: UNK
     Route: 065

REACTIONS (2)
  - Angiolymphoid hyperplasia with eosinophilia [Recovered/Resolved]
  - Paronychia [Recovered/Resolved]
